FAERS Safety Report 9195494 (Version 1)
Quarter: 2013Q1

REPORT INFORMATION
  Report Type: Spontaneous
  Country: IT (occurrence: IT)
  Receive Date: 20130328
  Receipt Date: 20130328
  Transmission Date: 20140127
  Serious: Yes (Other)
  Sender: FDA-Public Use
  Company Number: IT-BIOGENIDEC-2013BI027093

PATIENT
  Age: 50 Year
  Sex: Female

DRUGS (2)
  1. TYSABRI [Suspect]
     Indication: PRODUCT USED FOR UNKNOWN INDICATION
     Route: 042
     Dates: start: 20111201
  2. OXYBUTYN CHLORIDE [Concomitant]
     Dates: start: 20120517, end: 20130314

REACTIONS (2)
  - Breast neoplasm [Unknown]
  - Lymphadenopathy [Unknown]
